FAERS Safety Report 26201080 (Version 1)
Quarter: 2025Q4

REPORT INFORMATION
  Report Type: Spontaneous
  Country: US (occurrence: US)
  Receive Date: 20251226
  Receipt Date: 20251226
  Transmission Date: 20260117
  Serious: No
  Sender: Kanchan Healthcare
  Company Number: US-Kanchan Healthcare INC-2191353

PATIENT
  Age: 77 Year
  Sex: Female

DRUGS (10)
  1. ETHAMBUTOL HYDROCHLORIDE [Suspect]
     Active Substance: ETHAMBUTOL HYDROCHLORIDE
     Indication: Product used for unknown indication
     Dates: start: 2025, end: 20251028
  2. NUZYRA [Suspect]
     Active Substance: OMADACYCLINE
     Route: 061
     Dates: start: 20250906, end: 20251028
  3. TACROLIMUS [Concomitant]
     Active Substance: TACROLIMUS
  4. SERTRALINE [Concomitant]
     Active Substance: SERTRALINE HYDROCHLORIDE
  5. PRAVASTATIN [Concomitant]
     Active Substance: PRAVASTATIN
  6. METOPROLOL TARTRATE [Concomitant]
     Active Substance: METOPROLOL TARTRATE
  7. CHLORTHALIDONE [Concomitant]
     Active Substance: CHLORTHALIDONE
  8. AMLODIPINE [Concomitant]
     Active Substance: AMLODIPINE BESYLATE
  9. MYCOPHENOLIC ACID (MYCOPHENOLATE SODIUM) [Concomitant]
     Active Substance: MYCOPHENOLATE SODIUM
  10. ARIKAYCE [Concomitant]
     Active Substance: AMIKACIN

REACTIONS (3)
  - Abdominal pain upper [Recovered/Resolved]
  - Vomiting [Recovered/Resolved]
  - Diarrhoea [Recovered/Resolved]

NARRATIVE: CASE EVENT DATE: 20250101
